FAERS Safety Report 23501424 (Version 1)
Quarter: 2024Q1

REPORT INFORMATION
  Report Type: Spontaneous
  Country: US (occurrence: US)
  Receive Date: 20240208
  Receipt Date: 20240208
  Transmission Date: 20240410
  Serious: Yes (Other)
  Sender: FDA-Public Use
  Company Number: US-002147023-NVSC2024US026422

PATIENT
  Sex: Female

DRUGS (1)
  1. COSENTYX [Suspect]
     Active Substance: SECUKINUMAB
     Indication: Product used for unknown indication
     Dosage: UNK, QW (2X150MG)
     Route: 065
     Dates: start: 20240201

REACTIONS (5)
  - Dizziness [Unknown]
  - Dyspnoea [Unknown]
  - Loss of consciousness [Unknown]
  - Fall [Unknown]
  - Lip injury [Unknown]
